FAERS Safety Report 6133866-8 (Version None)
Quarter: 2009Q1

REPORT INFORMATION
  Report Type: 
  Country: None (occurrence: None)
  Receive Date: 20090326
  Receipt Date: 20090311
  Transmission Date: 20090719
  Serious: Yes (Death, Hospitalization)
  Sender: FDA-Public Use
  Company Number: MY-PFIZER INC-2008153978

PATIENT

DRUGS (6)
  1. SUNITINIB MALATE [Suspect]
     Indication: HEPATIC NEOPLASM MALIGNANT
     Dosage: 25 MG, 1X/DAY
     Route: 048
     Dates: start: 20081014, end: 20081208
  2. GLIBENCLAMIDE [Concomitant]
     Dosage: UNK
     Route: 048
     Dates: start: 19950101
  3. METFORMIN HYDROCHLORIDE [Concomitant]
     Dosage: UNK
     Route: 048
     Dates: start: 19950101
  4. PERINDOPRIL ERBUMINE [Concomitant]
     Dosage: UNK
     Route: 048
     Dates: start: 20080701
  5. BISACODYL [Concomitant]
     Indication: CONSTIPATION
     Dosage: UNK
     Dates: start: 20081112
  6. DIHYDROCODEINE BITARTRATE [Concomitant]
     Dosage: UNK
     Dates: start: 20081112

REACTIONS (1)
  - DEHYDRATION [None]
